FAERS Safety Report 18241806 (Version 1)
Quarter: 2020Q3

REPORT INFORMATION
  Report Type: Spontaneous
  Country: CA (occurrence: CA)
  Receive Date: 20200908
  Receipt Date: 20200908
  Transmission Date: 20201103
  Serious: Yes (Other)
  Sender: FDA-Public Use
  Company Number: CA-REGENERON PHARMACEUTICALS, INC.-2020-74828

PATIENT

DRUGS (2)
  1. EYLEA [Suspect]
     Active Substance: AFLIBERCEPT
     Indication: RETINAL VEIN OCCLUSION
     Dosage: INTO RIGHT EYE
     Dates: start: 20190212
  2. EYLEA [Suspect]
     Active Substance: AFLIBERCEPT
     Dosage: LATEST INJECTION PRIOR TO EVENT INTO RIGHT EYE
     Dates: start: 20200826, end: 20200826

REACTIONS (2)
  - Iridocyclitis [Recovering/Resolving]
  - Toxic anterior segment syndrome [Recovering/Resolving]
